FAERS Safety Report 4772404-9 (Version None)
Quarter: 2005Q3

REPORT INFORMATION
  Report Type: 
  Country: None (occurrence: None)
  Receive Date: 20050919
  Receipt Date: 20050621
  Transmission Date: 20060218
  Serious: No
  Sender: FDA-Public Use
  Company Number: US-BRISTOL-MYERS SQUIBB COMPANY-13010665

PATIENT
  Sex: Male

DRUGS (1)
  1. KENALOG-40 [Suspect]

REACTIONS (1)
  - ADVERSE EVENT [None]
